FAERS Safety Report 9714000 (Version 2)
Quarter: 2015Q3

REPORT INFORMATION
  Report Type: Spontaneous
  Country: US (occurrence: US)
  Receive Date: 20131126
  Receipt Date: 20150803
  Transmission Date: 20151125
  Serious: No
  Sender: FDA-Public Use
  Company Number: US-GILEAD-2008-0018506

PATIENT
  Age: 63 Year
  Sex: Female
  Weight: 63.05 kg

DRUGS (7)
  1. ZYRTEC [Concomitant]
     Active Substance: CETIRIZINE HYDROCHLORIDE
  2. CALCIUM [Concomitant]
     Active Substance: CALCIUM
  3. LOVAZA [Concomitant]
     Active Substance: OMEGA-3-ACID ETHYL ESTERS
  4. ADVIL [Concomitant]
     Active Substance: IBUPROFEN
  5. MULTIVITAMIN [Concomitant]
     Active Substance: VITAMINS
  6. COQ10 ENZYME [Concomitant]
  7. LETAIRIS [Suspect]
     Active Substance: AMBRISENTAN
     Indication: PULMONARY ARTERIAL HYPERTENSION
     Route: 048
     Dates: start: 20071130

REACTIONS (2)
  - White blood cell count decreased [None]
  - Palpitations [None]
